FAERS Safety Report 9677901 (Version 1)
Quarter: 2013Q4

REPORT INFORMATION
  Report Type: Spontaneous
  Country: AU (occurrence: AU)
  Receive Date: 20131108
  Receipt Date: 20131108
  Transmission Date: 20140711
  Serious: Yes (Other)
  Sender: FDA-Public Use
  Company Number: AU-SA-2013SA111778

PATIENT
  Age: 70 Year
  Sex: Male

DRUGS (3)
  1. AVAPRO HCT [Suspect]
     Indication: PRODUCT USED FOR UNKNOWN INDICATION
     Dosage: STRENGTH:300/12.5MG
     Route: 048
     Dates: start: 201204
  2. COPLAVIX [Concomitant]
  3. CARDIAC THERAPY [Concomitant]

REACTIONS (4)
  - Allergic granulomatous angiitis [Unknown]
  - Lip swelling [Unknown]
  - Mouth ulceration [Unknown]
  - Mouth ulceration [Unknown]
